FAERS Safety Report 22537877 (Version 1)
Quarter: 2023Q2

REPORT INFORMATION
  Report Type: Report from Study
  Country: US (occurrence: US)
  Receive Date: 20230608
  Receipt Date: 20230608
  Transmission Date: 20230722
  Serious: Yes (Hospitalization, Other)
  Sender: FDA-Public Use
  Company Number: US-BAUSCH-BL-2021-022239

PATIENT
  Age: 62 Year
  Sex: Male
  Weight: 81.72 kg

DRUGS (15)
  1. XIFAXAN [Suspect]
     Active Substance: RIFAXIMIN
     Indication: Hepatic encephalopathy
     Route: 048
  2. PANTOPRAZOLE [Concomitant]
     Active Substance: PANTOPRAZOLE
     Indication: Product used for unknown indication
     Dosage: ENTERIC COATED, 1 TABLET NIGHTLY
     Route: 048
  3. GAS-X [Concomitant]
     Active Substance: DIMETHICONE
     Indication: Product used for unknown indication
     Dosage: GAS-X ULTRA STRENGTH
     Route: 048
  4. CLOPIDOGREL [Concomitant]
     Active Substance: CLOPIDOGREL BISULFATE
     Indication: Product used for unknown indication
     Route: 048
  5. TAMSULOSIN [Concomitant]
     Active Substance: TAMSULOSIN
     Indication: Product used for unknown indication
     Dosage: 1/2 HOUR FOLLOWING THE SAME MEAL EACH DAY
     Route: 048
  6. QUETIAPINE [Concomitant]
     Active Substance: QUETIAPINE
     Indication: Product used for unknown indication
     Route: 048
  7. LITHIUM CARBONATE [Concomitant]
     Active Substance: LITHIUM CARBONATE
     Indication: Product used for unknown indication
     Dosage: TABLET EXTENDED RELEASE
     Route: 048
  8. IMIPRAMINE HYDROCHLORIDE [Concomitant]
     Active Substance: IMIPRAMINE HYDROCHLORIDE
     Indication: Product used for unknown indication
     Route: 048
  9. ALFUZOSIN [Concomitant]
     Active Substance: ALFUZOSIN
     Indication: Product used for unknown indication
     Dosage: EXTENDED RELEASE 24 HR, EMMEDIATELY AFTER SAME MEAL EACH DAY
     Route: 048
  10. ALPRAZOLAM [Concomitant]
     Active Substance: ALPRAZOLAM
     Indication: Product used for unknown indication
     Route: 048
  11. LACTULOSE [Concomitant]
     Active Substance: LACTULOSE
     Indication: Hepatic encephalopathy
     Dosage: 10 GRAM/15 ML
     Route: 048
  12. ATORVASTATIN [Concomitant]
     Active Substance: ATORVASTATIN
     Indication: Product used for unknown indication
     Route: 048
  13. ASPIRIN [Concomitant]
     Active Substance: ASPIRIN
     Indication: Product used for unknown indication
     Dosage: ENTERIC COATED
     Route: 048
  14. METOPROLOL SUCCINATE [Concomitant]
     Active Substance: METOPROLOL SUCCINATE
     Indication: Product used for unknown indication
     Dosage: EXTENDED RELEASE 24 HR, TAKE 1/2 TABLET TWICE DAILY
     Route: 048
  15. ONDANSETRON [Concomitant]
     Active Substance: ONDANSETRON
     Indication: Product used for unknown indication
     Dosage: DISINTEGRATING, AS NEEDED
     Route: 048

REACTIONS (32)
  - Biliary colic [Unknown]
  - Hepatic encephalopathy [Unknown]
  - Disease recurrence [Unknown]
  - Cholecystitis acute [Unknown]
  - Non-alcoholic steatohepatitis [Unknown]
  - Cholestasis [Unknown]
  - Bile duct stone [Unknown]
  - Biliary dilatation [Unknown]
  - Major depression [Unknown]
  - Thrombocytopenia [Unknown]
  - Brain fog [Unknown]
  - Varices oesophageal [Unknown]
  - Amnesia [Unknown]
  - Blood alkaline phosphatase increased [Unknown]
  - Benign lymph node neoplasm [Unknown]
  - Fibrosis [Unknown]
  - Hepatic steatosis [Unknown]
  - Biliary tract disorder [Unknown]
  - Mitral valve prolapse [Unknown]
  - Joint stiffness [Unknown]
  - Contusion [Recovering/Resolving]
  - Generalised anxiety disorder [Unknown]
  - Gastrooesophageal reflux disease [Unknown]
  - Oesophagitis [Unknown]
  - Colon neoplasm [Unknown]
  - Sarcopenia [Unknown]
  - Arthralgia [Unknown]
  - Pain [Unknown]
  - Nausea [Unknown]
  - Fatigue [Unknown]
  - Inability to afford medication [Unknown]
  - Insurance issue [Unknown]
